FAERS Safety Report 25865155 (Version 1)
Quarter: 2025Q3

REPORT INFORMATION
  Report Type: Spontaneous
  Country: EU (occurrence: EU)
  Receive Date: 20250930
  Receipt Date: 20250930
  Transmission Date: 20251020
  Serious: Yes (Hospitalization)
  Sender: NORDIC PHARMA
  Company Number: None

PATIENT
  Age: 75 Year
  Sex: Female
  Weight: 59 kg

DRUGS (2)
  1. METHOTREXATE [Suspect]
     Active Substance: METHOTREXATE
     Indication: Systemic scleroderma
     Route: 048
     Dates: start: 20250818, end: 20250831
  2. DIAMOX SEQUELS [Concomitant]
     Active Substance: ACETAZOLAMIDE
     Indication: Glaucoma
     Route: 065

REACTIONS (6)
  - Febrile bone marrow aplasia [Not Recovered/Not Resolved]
  - Inappropriate schedule of product administration [Recovered/Resolved]
  - Accidental overdose [Unknown]
  - Product use in unapproved indication [Unknown]
  - Diarrhoea [Unknown]
  - Stomatitis [Unknown]

NARRATIVE: CASE EVENT DATE: 20250115
